FAERS Safety Report 10243391 (Version 3)
Quarter: 2014Q3

REPORT INFORMATION
  Report Type: Spontaneous
  Country: CA (occurrence: CA)
  Receive Date: 20140618
  Receipt Date: 20140822
  Transmission Date: 20150326
  Serious: Yes (Hospitalization, Other)
  Sender: FDA-Public Use
  Company Number: CA-AMGEN INC.-CANSP2014044183

PATIENT
  Age: 92 Year
  Sex: Female
  Weight: 41.72 kg

DRUGS (25)
  1. ACETAMINOPHEN. [Concomitant]
     Active Substance: ACETAMINOPHEN
     Dosage: 500 MG, UNK
     Route: 048
  2. PERINDOPRIL [Concomitant]
     Active Substance: PERINDOPRIL
     Dosage: 8 MG, UNK, H.S
  3. ATORVASTATIN [Concomitant]
     Active Substance: ATORVASTATIN
  4. VITAMIN B12 [Concomitant]
     Active Substance: CYANOCOBALAMIN
     Dosage: 1 MG, QMO
  5. NITRO                              /00003201/ [Concomitant]
     Dosage: UNK UNK, AS NECESSARY
  6. PROLIA [Suspect]
     Active Substance: DENOSUMAB
     Indication: OSTEOPOROSIS POSTMENOPAUSAL
     Dosage: 60 MG, Q6MO
     Route: 058
     Dates: start: 20111124
  7. COVERSYL                           /00790702/ [Concomitant]
     Active Substance: PERINDOPRIL
     Indication: HYPERTENSION
     Dosage: 4 MG, QD
     Route: 048
  8. PANTOPRAZOLE [Concomitant]
     Active Substance: PANTOPRAZOLE SODIUM
  9. SYNTHROID [Concomitant]
     Active Substance: LEVOTHYROXINE SODIUM
     Indication: HYPOTHYROIDISM
     Dosage: 0.1 MG, UNK
     Route: 048
  10. BISOPROLOL [Concomitant]
     Active Substance: BISOPROLOL
     Indication: HYPERTENSION
     Dosage: 2.5 MG, Q12H
     Route: 048
  11. ASA [Concomitant]
     Active Substance: ASPIRIN
     Dosage: 81 MG, QD
     Route: 048
  12. RANITIDINE [Concomitant]
     Active Substance: RANITIDINE\RANITIDINE HYDROCHLORIDE
     Dosage: 150 MG, QD
  13. ESTRADIOL. [Concomitant]
     Active Substance: ESTRADIOL
     Dosage: UNK
  14. MULTIVITAMIN                       /00097801/ [Concomitant]
     Active Substance: VITAMINS
     Dosage: UNK UNK, QD
  15. VAGIFEM [Concomitant]
     Active Substance: ESTRADIOL
  16. VITAMIN D 2000 [Concomitant]
  17. CALCIUM CARBONATE. [Concomitant]
     Active Substance: CALCIUM CARBONATE
     Dosage: 500 MG, QD
  18. VITAMIN D                          /00107901/ [Concomitant]
     Active Substance: ERGOCALCIFEROL
     Dosage: 3000 UNIT/2000 UNIT
     Route: 042
  19. CALCIUM [Concomitant]
     Active Substance: CALCIUM
     Dosage: 500 MG, UNK
  20. CORTISONE [Concomitant]
     Active Substance: CORTISONE\HYDROCORTISONE
  21. DALTEPARIN [Concomitant]
     Active Substance: DALTEPARIN
  22. LIPITOR [Concomitant]
     Active Substance: ATORVASTATIN CALCIUM
     Indication: DYSLIPIDAEMIA
     Dosage: 40 MG, QD
     Route: 048
  23. ASPIRIN                            /00002701/ [Concomitant]
     Active Substance: ASPIRIN
  24. NORVASC [Concomitant]
     Active Substance: AMLODIPINE BESYLATE
     Dosage: 7.5 MG, UNK, H.S
  25. THYROXINE [Concomitant]
     Active Substance: LEVOTHYROXINE

REACTIONS (26)
  - Depressed mood [Unknown]
  - Sleep apnoea syndrome [Unknown]
  - Delirium [Unknown]
  - Pruritus [Not Recovered/Not Resolved]
  - Asthenia [Not Recovered/Not Resolved]
  - Hypoacusis [Unknown]
  - Urinary tract disorder [Unknown]
  - Joint range of motion decreased [Unknown]
  - Cerebrovascular accident [Unknown]
  - Hypothyroidism [Not Recovered/Not Resolved]
  - Bone pain [Not Recovered/Not Resolved]
  - Weight decreased [Unknown]
  - Gastrooesophageal reflux disease [Unknown]
  - Syncope [Unknown]
  - Pain [Not Recovered/Not Resolved]
  - Lipids increased [Unknown]
  - Spinal compression fracture [Not Recovered/Not Resolved]
  - Osteoarthritis [Unknown]
  - Muscular weakness [Unknown]
  - Oedema peripheral [Unknown]
  - Balance disorder [Unknown]
  - Acute myocardial infarction [Unknown]
  - Discomfort [Not Recovered/Not Resolved]
  - Blood pressure increased [Unknown]
  - Skin atrophy [Not Recovered/Not Resolved]
  - Papule [Not Recovered/Not Resolved]

NARRATIVE: CASE EVENT DATE: 201307
